FAERS Safety Report 5694395-9 (Version None)
Quarter: 2008Q2

REPORT INFORMATION
  Report Type: 
  Country: None (occurrence: None)
  Receive Date: 20080403
  Receipt Date: 20080327
  Transmission Date: 20081010
  Serious: Yes (Hospitalization)
  Sender: FDA-Public Use
  Company Number: 920 # 8 # 2008-00004

PATIENT
  Age: 88 Year
  Sex: Female

DRUGS (1)
  1. NIFEDIPINE-DOSE-UNKNOWN-EXTENTED-RLEASE -TABLET (NIFEDIPINE) [Suspect]
     Indication: HYPERTENSION

REACTIONS (2)
  - BEZOAR [None]
  - COLONIC OBSTRUCTION [None]
